FAERS Safety Report 5354470-5 (Version None)
Quarter: 2007Q2

REPORT INFORMATION
  Report Type: 
  Country: None (occurrence: None)
  Receive Date: 20070612
  Receipt Date: 20070531
  Transmission Date: 20071010
  Serious: No
  Sender: FDA-Public Use
  Company Number: US-ASTRAZENECA-2006UW08140

PATIENT
  Sex: Female
  Weight: 90.9 kg

DRUGS (5)
  1. SEROQUEL [Suspect]
     Route: 048
  2. ABILIFY [Concomitant]
  3. HALDOL [Concomitant]
     Dates: start: 20010101
  4. PROZAC [Concomitant]
  5. DEPAKOTE [Concomitant]

REACTIONS (1)
  - DIABETES MELLITUS [None]
